FAERS Safety Report 5663375-1 (Version None)
Quarter: 2008Q1

REPORT INFORMATION
  Report Type: 
  Country: None (occurrence: None)
  Receive Date: 20080307
  Receipt Date: 20080229
  Transmission Date: 20080703
  Serious: Yes (Death, Other)
  Sender: FDA-Public Use
  Company Number: 151-C5013-07080104

PATIENT
  Age: 67 Year
  Sex: Female

DRUGS (5)
  1. CC-5013 (LENALIDOMIDE) (CAPSULES) [Suspect]
     Indication: DRUG USE FOR UNKNOWN INDICATION
     Dosage: ORAL
     Route: 048
     Dates: end: 20070801
  2. LYRICA [Concomitant]
  3. PANTAZPL (PANTOPRAZOLE SODIUM) [Concomitant]
  4. BACTRIM [Concomitant]
  5. DIFLUCAN [Concomitant]

REACTIONS (6)
  - CARDIOVASCULAR DISORDER [None]
  - INFECTION [None]
  - MARROW HYPERPLASIA [None]
  - MULTI-ORGAN FAILURE [None]
  - PANCYTOPENIA [None]
  - SYSTEMIC INFLAMMATORY RESPONSE SYNDROME [None]
